FAERS Safety Report 7674816-2 (Version None)
Quarter: 2011Q3

REPORT INFORMATION
  Report Type: 
  Country: None (occurrence: None)
  Receive Date: 20110810
  Receipt Date: 20110209
  Transmission Date: 20111222
  Serious: No
  Sender: FDA-Public Use
  Company Number: US-BAYER-2011-013254

PATIENT
  Age: 72 Year
  Sex: Male

DRUGS (10)
  1. ATROVENT [Concomitant]
  2. CIPRO [Suspect]
     Indication: PROSTATE INFECTION
     Route: 048
  3. LOTREL [Concomitant]
  4. TOPROL-XL [Concomitant]
  5. SINGULAIR [Concomitant]
  6. SYMBICORT [Concomitant]
  7. ASPIRIN [Concomitant]
  8. PROAIR HFA [Concomitant]
  9. LIPITOR [Concomitant]
  10. LORATADINE [Concomitant]

REACTIONS (1)
  - MUSCLE SPASMS [None]
